FAERS Safety Report 8397890-7 (Version None)
Quarter: 2012Q2

REPORT INFORMATION
  Report Type: 
  Country: None (occurrence: None)
  Receive Date: 20120531
  Receipt Date: 20120529
  Transmission Date: 20120825
  Serious: Yes (Death, Other)
  Sender: FDA-Public Use
  Company Number: PHHY2012CA024016

PATIENT
  Sex: Female

DRUGS (9)
  1. LASIX [Concomitant]
     Dosage: UNK UKN, UNK
  2. CALCIUM WITH VITAMIN D [Concomitant]
     Dosage: UNK UKN, UNK
  3. ZOLEDRONOC ACID [Suspect]
     Indication: OSTEOPOROSIS
     Dosage: UNK UKN, UNK
     Route: 042
     Dates: start: 20110616
  4. ALDACTONE [Concomitant]
     Dosage: UNK UKN, UNK
  5. RAMIPRIL [Concomitant]
     Dosage: UNK UKN, UNK
  6. DIGOXIN [Concomitant]
     Dosage: UNK UKN, UNK
  7. METFORMIN HCL [Concomitant]
     Dosage: UNK UKN, UNK
  8. COUMADIN [Concomitant]
     Dosage: UNK UKN, UNK
  9. CRESTOR [Concomitant]
     Dosage: UNK UKN, UNK

REACTIONS (2)
  - SEPSIS [None]
  - VENTRICULAR TACHYCARDIA [None]
